FAERS Safety Report 24416501 (Version 1)
Quarter: 2024Q4

REPORT INFORMATION
  Report Type: Spontaneous
  Country: US (occurrence: None)
  Receive Date: 20241007
  Receipt Date: 20241007
  Transmission Date: 20250114
  Serious: Yes (unspecified)
  Sender: Public
  Company Number: None

PATIENT
  Age: 70 Year
  Sex: Female
  Weight: 54 kg

DRUGS (1)
  1. CARBOPLATIN [Suspect]
     Active Substance: CARBOPLATIN
     Indication: Ovarian cancer
     Dates: start: 20240924, end: 20240924

REACTIONS (3)
  - Chest discomfort [None]
  - Chest discomfort [None]
  - Infusion related reaction [None]

NARRATIVE: CASE EVENT DATE: 20240924
